FAERS Safety Report 25408013 (Version 1)
Quarter: 2025Q2

REPORT INFORMATION
  Report Type: Spontaneous
  Country: CA (occurrence: CA)
  Receive Date: 20250606
  Receipt Date: 20250606
  Transmission Date: 20250716
  Serious: Yes (Other)
  Sender: ANI
  Company Number: CA-ANIPHARMA-2025-CA-001861

PATIENT
  Age: 78 Year
  Sex: Female
  Weight: 48 kg

DRUGS (10)
  1. CANDESARTAN CILEXETIL [Suspect]
     Active Substance: CANDESARTAN CILEXETIL
     Indication: Hypertension
     Route: 048
  2. WARFARIN [Concomitant]
     Active Substance: WARFARIN
  3. VALSARTAN [Suspect]
     Active Substance: VALSARTAN
  4. COLACE [Concomitant]
     Active Substance: DOCUSATE SODIUM
  5. FERAMAX [Concomitant]
     Active Substance: IRON\POLYSACCHARIDES
  6. LEVOTHYROXINE [Concomitant]
     Active Substance: LEVOTHYROXINE
  7. NORTRIPTYLINE [Concomitant]
     Active Substance: NORTRIPTYLINE
  8. NORVASC [Concomitant]
     Active Substance: AMLODIPINE BESYLATE
  9. PANTOPRAZOLE SODIUM [Concomitant]
     Active Substance: PANTOPRAZOLE SODIUM
  10. SOTALOL [Concomitant]
     Active Substance: SOTALOL

REACTIONS (5)
  - Arthralgia [Unknown]
  - Joint effusion [Unknown]
  - Joint stiffness [Unknown]
  - Swelling [Unknown]
  - Rash [Unknown]
